FAERS Safety Report 15491910 (Version 1)
Quarter: 2018Q4

REPORT INFORMATION
  Report Type: Spontaneous
  Country: US (occurrence: US)
  Receive Date: 20181011
  Receipt Date: 20181011
  Transmission Date: 20190205
  Serious: No
  Sender: FDA-Public Use
  Company Number: None

PATIENT
  Sex: Female

DRUGS (2)
  1. BETAMETHASONE OINTMENT [Suspect]
     Active Substance: BETAMETHASONE
  2. TEMOVATE [Suspect]
     Active Substance: CLOBETASOL PROPIONATE

REACTIONS (2)
  - Drug effect decreased [None]
  - Drug ineffective [None]
